FAERS Safety Report 22848908 (Version 2)
Quarter: 2023Q4

REPORT INFORMATION
  Report Type: Spontaneous
  Country: GB (occurrence: GB)
  Receive Date: 20230822
  Receipt Date: 20231103
  Transmission Date: 20240109
  Serious: Yes (Hospitalization, Other)
  Sender: FDA-Public Use
  Company Number: GB-MYLANLABS-2023M1078416

PATIENT
  Age: 30 Year
  Sex: Male
  Weight: 74 kg

DRUGS (1)
  1. CLOZARIL [Suspect]
     Active Substance: CLOZAPINE
     Indication: Product used for unknown indication
     Dosage: 300 MILLIGRAM, QD (100MG MANE, 200MG NOCTE)
     Route: 048
     Dates: start: 20110302

REACTIONS (5)
  - Hospitalisation [Unknown]
  - Seizure [Unknown]
  - White blood cell count decreased [Recovered/Resolved]
  - Leukocytosis [Recovered/Resolved]
  - Neutrophilia [Recovered/Resolved]

NARRATIVE: CASE EVENT DATE: 20230718
